FAERS Safety Report 23904413 (Version 1)
Quarter: 2024Q2

REPORT INFORMATION
  Report Type: Spontaneous
  Country: CN (occurrence: None)
  Receive Date: 20240527
  Receipt Date: 20240527
  Transmission Date: 20240716
  Serious: Yes (Other)
  Sender: FDA-Public Use
  Company Number: CN-Unichem Pharmaceuticals (USA) Inc-UCM202405-000568

PATIENT
  Age: 52 Year
  Sex: Female

DRUGS (21)
  1. ARIPIPRAZOLE [Suspect]
     Active Substance: ARIPIPRAZOLE
     Indication: Schizophrenia
  2. ZIPRASIDONE [Suspect]
     Active Substance: ZIPRASIDONE
     Indication: Schizophrenia
  3. RISPERIDONE [Suspect]
     Active Substance: RISPERIDONE
     Indication: Schizophrenia
  4. RISPERIDONE [Suspect]
     Active Substance: RISPERIDONE
  5. SULPIRIDE [Suspect]
     Active Substance: SULPIRIDE
     Indication: Schizophrenia
  6. OLANZAPINE [Suspect]
     Active Substance: OLANZAPINE
     Indication: Schizophrenia
  7. CLOZAPINE [Suspect]
     Active Substance: CLOZAPINE
     Indication: Schizophrenia
  8. CLOZAPINE [Suspect]
     Active Substance: CLOZAPINE
  9. TRIHEXYPHENIDYL [Suspect]
     Active Substance: TRIHEXYPHENIDYL
     Indication: Product used for unknown indication
  10. TRIHEXYPHENIDYL [Suspect]
     Active Substance: TRIHEXYPHENIDYL
  11. ORYZANOL [Suspect]
     Active Substance: GAMMA ORYZANOL
     Indication: Product used for unknown indication
  12. PROPRANOLOL [Suspect]
     Active Substance: PROPRANOLOL HYDROCHLORIDE
     Indication: Product used for unknown indication
  13. PROPRANOLOL [Suspect]
     Active Substance: PROPRANOLOL HYDROCHLORIDE
  14. INOSINE [Suspect]
     Active Substance: INOSINE
     Indication: Product used for unknown indication
  15. ADENOSINE TRIPHOSPHATE DISODIUM [Suspect]
     Active Substance: ADENOSINE TRIPHOSPHATE DISODIUM
     Indication: Product used for unknown indication
  16. HERBALS [Suspect]
     Active Substance: HERBALS
     Indication: Hyperlipidaemia
  17. HERBALS [Suspect]
     Active Substance: HERBALS
     Indication: Coronary artery disease
  18. HERBALS [Suspect]
     Active Substance: HERBALS
     Indication: Coronary artery disease
  19. HERBALS [Suspect]
     Active Substance: HERBALS
     Indication: Hyperlipidaemia
  20. HERBALS [Suspect]
     Active Substance: HERBALS
  21. HERBALS [Suspect]
     Active Substance: HERBALS
     Indication: Product used for unknown indication

REACTIONS (10)
  - Psychomotor retardation [Recovered/Resolved]
  - Disturbance in attention [Recovered/Resolved]
  - Delusion [Recovered/Resolved]
  - Abulia [Recovered/Resolved]
  - Anosognosia [Recovered/Resolved]
  - Anxiety [Recovered/Resolved]
  - Infrequent bowel movements [Recovered/Resolved]
  - Drug level increased [Recovered/Resolved]
  - Intentional overdose [Unknown]
  - Toxicity to various agents [Unknown]
